FAERS Safety Report 9535073 (Version 1)
Quarter: 2013Q3

REPORT INFORMATION
  Report Type: Spontaneous
  Country: ZA (occurrence: ZA)
  Receive Date: 20130918
  Receipt Date: 20130918
  Transmission Date: 20140515
  Serious: Yes (Hospitalization)
  Sender: FDA-Public Use
  Company Number: ZA-B.I. PHARMACEUTICALS,INC./RIDGEFIELD-2013-BI-28521ZA

PATIENT
  Age: 59 Year
  Sex: Male

DRUGS (3)
  1. TWYNSTA [Suspect]
     Indication: HYPERTENSION
     Dosage: DOSE PER APPLICATION: 80/5 MG
     Route: 048
     Dates: start: 201307, end: 20130830
  2. ATENOLOL [Concomitant]
     Indication: HYPERTENSION
     Dosage: 50 MG
  3. INDAPAMIDE [Concomitant]
     Indication: HYPERTENSION
     Dosage: 2.5 MG

REACTIONS (4)
  - Dermatitis [Not Recovered/Not Resolved]
  - Ulcer [Not Recovered/Not Resolved]
  - Cellulitis [Not Recovered/Not Resolved]
  - Oedema [Not Recovered/Not Resolved]
